FAERS Safety Report 4459329-3 (Version None)
Quarter: 2004Q3

REPORT INFORMATION
  Report Type: 
  Country: None (occurrence: None)
  Receive Date: 20040927
  Receipt Date: 20030605
  Transmission Date: 20050211
  Serious: Yes (Other)
  Sender: FDA-Public Use
  Company Number: US-MERCK-0306USA00654

PATIENT
  Age: 73 Year
  Sex: Female

DRUGS (7)
  1. ASPIRIN [Concomitant]
     Route: 065
  2. AVALIDE [Concomitant]
     Route: 065
     Dates: start: 20000801, end: 20001030
  3. SYNTHROID [Concomitant]
     Route: 048
  4. PRILOSEC [Concomitant]
     Route: 065
  5. PYRIDOXINE [Concomitant]
     Route: 065
  6. VIOXX [Suspect]
     Route: 048
     Dates: start: 20000101, end: 20001030
  7. VITAMIN E [Concomitant]
     Route: 065

REACTIONS (60)
  - ABDOMINAL DISTENSION [None]
  - ANGINA PECTORIS [None]
  - ANOREXIA [None]
  - ANXIETY [None]
  - APNOEA [None]
  - ARTHROPOD STING [None]
  - ASTHENIA [None]
  - BACK PAIN [None]
  - BALANCE DISORDER [None]
  - BLADDER DISORDER [None]
  - BLOOD CHOLESTEROL INCREASED [None]
  - BLOOD TRIGLYCERIDES INCREASED [None]
  - BRONCHITIS [None]
  - BRONCHITIS ACUTE [None]
  - CARDIAC FAILURE CONGESTIVE [None]
  - CARPAL TUNNEL SYNDROME [None]
  - CELLULITIS [None]
  - CHEST PAIN [None]
  - CORONARY ARTERY DISEASE [None]
  - COUGH [None]
  - DEEP VEIN THROMBOSIS [None]
  - DIARRHOEA [None]
  - DIZZINESS [None]
  - DRUG INEFFECTIVE [None]
  - DYSPHAGIA [None]
  - EPISTAXIS [None]
  - FATIGUE [None]
  - FEELING ABNORMAL [None]
  - FLATULENCE [None]
  - HAEMORRHOIDS [None]
  - HEART RATE INCREASED [None]
  - HOARSENESS [None]
  - HYPERSENSITIVITY [None]
  - INJURY [None]
  - INSOMNIA [None]
  - MUSCULOSKELETAL STIFFNESS [None]
  - MYOCARDIAL ISCHAEMIA [None]
  - NASAL DISORDER [None]
  - NASOPHARYNGITIS [None]
  - NAUSEA [None]
  - NECK PAIN [None]
  - NEPHROPATHY [None]
  - NERVOUSNESS [None]
  - NOCTURIA [None]
  - OEDEMA PERIPHERAL [None]
  - PARALYSIS [None]
  - PROCTALGIA [None]
  - RENAL DISORDER [None]
  - RENAL FAILURE CHRONIC [None]
  - RENAL TUBULAR NECROSIS [None]
  - SINUS DISORDER [None]
  - SKIN CANCER [None]
  - SNORING [None]
  - SOMNOLENCE [None]
  - TINNITUS [None]
  - TONSILLAR DISORDER [None]
  - TREMOR [None]
  - ULCER [None]
  - URINARY INCONTINENCE [None]
  - URINARY TRACT INFECTION [None]
